FAERS Safety Report 5608869-X (Version None)
Quarter: 2008Q1

REPORT INFORMATION
  Report Type: 
  Country: None (occurrence: None)
  Receive Date: 20080131
  Receipt Date: 20080125
  Transmission Date: 20080703
  Serious: Yes (Other)
  Sender: FDA-Public Use
  Company Number: US-ALLERGAN-0800942US

PATIENT
  Sex: Female

DRUGS (9)
  1. LUMIGAN [Suspect]
     Indication: GLAUCOMA
     Dosage: 1 GTT, QHS
     Route: 047
     Dates: start: 20060101, end: 20080124
  2. TOPROL-XL [Concomitant]
     Dosage: 100 MG, QD
     Route: 048
  3. HYDROXYUREA [Concomitant]
     Dosage: 100 MG, BID
     Route: 048
  4. XANAX [Concomitant]
     Dosage: 0.25 MG, PRN
     Route: 048
  5. CLARITIN [Concomitant]
     Dosage: 10 MG, PRN
  6. HYDROCHLOROTHIAZIDE W/TRIAMTERENE [Concomitant]
     Dosage: UNK, QD
     Route: 048
  7. PRILOSEC [Concomitant]
     Dosage: 20 MG, QD
     Route: 048
  8. TYLENOL [Concomitant]
     Dosage: UNK, PRN
     Route: 048
  9. ASPIRIN [Concomitant]
     Dosage: 325 MG, QD
     Route: 048

REACTIONS (1)
  - CHEST PAIN [None]
